FAERS Safety Report 4481146-9 (Version None)
Quarter: 2004Q3

REPORT INFORMATION
  Report Type: 
  Country: None (occurrence: None)
  Receive Date: 20040923
  Receipt Date: 20040608
  Transmission Date: 20050211
  Serious: No
  Sender: FDA-Public Use
  Company Number: USA040567447

PATIENT
  Age: 76 Year
  Sex: Female
  Weight: 61.2356 kg

DRUGS (8)
  1. FORTEO [Suspect]
     Indication: OSTEOPOROSIS
     Dosage: 20 UG DAY
     Dates: start: 20040514, end: 20040601
  2. FUROSEMIDE [Concomitant]
  3. THEOPHYLLINE [Concomitant]
  4. PRILOSEC [Concomitant]
  5. COMBIVENT [Concomitant]
  6. CALCIUM [Concomitant]
  7. OSTEO BI-FLEX [Concomitant]
  8. VITAMIN C AND E [Concomitant]

REACTIONS (2)
  - INJECTION SITE ERYTHEMA [None]
  - PRURITUS [None]
